FAERS Safety Report 9470426 (Version 1)
Quarter: 2013Q3

REPORT INFORMATION
  Report Type: Spontaneous
  Country: US (occurrence: US)
  Receive Date: 20130822
  Receipt Date: 20130822
  Transmission Date: 20140515
  Serious: No
  Sender: FDA-Public Use
  Company Number: US-B.I. PHARMACEUTICALS,INC./RIDGEFIELD-2013-BI-25109BP

PATIENT
  Age: 64 Year
  Sex: Female
  Weight: 57 kg

DRUGS (3)
  1. COMBIVENT [Suspect]
     Dosage: STRENGTH: 20 MCG / 100 MCG; DAILY DOSE: 80 MCG/ 400 MCG
     Route: 055
     Dates: start: 20130813
  2. PROPRANOLOL [Concomitant]
     Indication: HYPERTENSION
     Route: 048
  3. TRIAMTERENE [Concomitant]
     Indication: HYPERTENSION
     Route: 048

REACTIONS (1)
  - Drug ineffective [Not Recovered/Not Resolved]
